FAERS Safety Report 5188545-0 (Version None)
Quarter: 2006Q4

REPORT INFORMATION
  Report Type: 
  Country: None (occurrence: None)
  Receive Date: 20061221
  Receipt Date: 20061213
  Transmission Date: 20070319
  Serious: Yes (Other)
  Sender: FDA-Public Use
  Company Number: US-JNJFOC-20060705358

PATIENT
  Sex: Female
  Weight: 92.53 kg

DRUGS (1)
  1. ORTHO EVRA [Suspect]
     Indication: DRUG USE FOR UNKNOWN INDICATION
     Route: 062

REACTIONS (4)
  - HAEMORRHAGE [None]
  - PULMONARY EMBOLISM [None]
  - THYROID MASS [None]
  - UTERINE LEIOMYOMA [None]
